FAERS Safety Report 12937617 (Version 1)
Quarter: 2016Q4

REPORT INFORMATION
  Report Type: Spontaneous
  Country: GR (occurrence: GR)
  Receive Date: 20161114
  Receipt Date: 20161114
  Transmission Date: 20170207
  Serious: Yes (Other)
  Sender: FDA-Public Use
  Company Number: GR-TAKEDA-2016TUS020255

PATIENT
  Age: 40 Year
  Sex: Female

DRUGS (2)
  1. ENTYVIO [Suspect]
     Active Substance: VEDOLIZUMAB
     Indication: COLITIS ULCERATIVE
     Dosage: UNK
     Route: 042
     Dates: start: 201604
  2. MESALAZINE [Concomitant]
     Active Substance: MESALAMINE
     Dosage: 1200 MG, QD
     Dates: start: 201501

REACTIONS (1)
  - Female genital tract fistula [Unknown]

NARRATIVE: CASE EVENT DATE: 20161103
